FAERS Safety Report 13835615 (Version 1)
Quarter: 2017Q3

REPORT INFORMATION
  Report Type: Report from Study
  Country: KR (occurrence: KR)
  Receive Date: 20170804
  Receipt Date: 20170804
  Transmission Date: 20171127
  Serious: Yes (Hospitalization)
  Sender: FDA-Public Use
  Company Number: KR-JNJFOC-20170331887

PATIENT
  Age: 50 Year
  Sex: Male
  Weight: 50 kg

DRUGS (18)
  1. STELARA [Suspect]
     Active Substance: USTEKINUMAB
     Indication: PSORIASIS
     Route: 058
     Dates: start: 20160822
  2. BETAMETHASONE W/CALCIPOTRIOL [Concomitant]
     Indication: PSORIASIS
     Dosage: 1 TB TWICE TOPICAL
     Route: 061
     Dates: start: 20150515
  3. ATIVAN [Concomitant]
     Active Substance: LORAZEPAM
     Indication: ALCOHOLISM
     Dosage: 1 T 3 TIMES ORAL
     Route: 048
     Dates: start: 20130826
  4. STELARA [Suspect]
     Active Substance: USTEKINUMAB
     Indication: PSORIASIS
     Route: 058
     Dates: start: 20160822
  5. STELARA [Suspect]
     Active Substance: USTEKINUMAB
     Indication: PSORIASIS
     Route: 058
     Dates: start: 20161124
  6. STELARA [Suspect]
     Active Substance: USTEKINUMAB
     Indication: PSORIASIS
     Route: 058
     Dates: start: 20160422
  7. LEGALON [Concomitant]
     Active Substance: MILK THISTLE
     Indication: CIRRHOSIS ALCOHOLIC
     Dosage: 1 CAP TWICE ORAL
     Route: 048
     Dates: start: 20150806
  8. XAMIOL [Concomitant]
     Active Substance: BETAMETHASONE DIPROPIONATE\CALCIPOTRIENE HYDRATE
     Indication: PSORIASIS
     Dosage: 1 TB TWICE TOPICAL
     Route: 061
     Dates: start: 20141103
  9. STELARA [Suspect]
     Active Substance: USTEKINUMAB
     Indication: PSORIASIS
     Route: 058
     Dates: start: 20170224
  10. STELARA [Suspect]
     Active Substance: USTEKINUMAB
     Indication: PSORIASIS
     Route: 058
     Dates: start: 20161124
  11. INDENOL [Concomitant]
     Active Substance: PROPRANOLOL HYDROCHLORIDE
     Indication: VARICES OESOPHAGEAL
     Dosage: 0.5T TWICE ORAL
     Route: 048
     Dates: start: 20150722
  12. STELARA [Suspect]
     Active Substance: USTEKINUMAB
     Indication: PSORIASIS
     Route: 058
     Dates: start: 20170224
  13. STELARA [Suspect]
     Active Substance: USTEKINUMAB
     Indication: PSORIASIS
     Route: 058
     Dates: start: 20160519
  14. STELARA [Suspect]
     Active Substance: USTEKINUMAB
     Indication: PSORIASIS
     Route: 058
     Dates: start: 20160422
  15. DIABEX [Concomitant]
     Active Substance: METFORMIN HYDROCHLORIDE
     Indication: DIABETES MELLITUS
     Dosage: 1 T ONCE ORAL
     Route: 048
     Dates: start: 20121012
  16. HEPA MERZ [Concomitant]
     Indication: CIRRHOSIS ALCOHOLIC
     Dosage: 1 PK ONCE ORAL
     Route: 048
     Dates: start: 20060703
  17. STELARA [Suspect]
     Active Substance: USTEKINUMAB
     Indication: PSORIASIS
     Route: 058
     Dates: start: 20160519
  18. WELLTAMIN [Concomitant]
     Indication: DIABETES MELLITUS
     Route: 048
     Dates: start: 20090319

REACTIONS (9)
  - Diverticulum [Not Recovered/Not Resolved]
  - Diverticulum intestinal [Not Recovered/Not Resolved]
  - Psoriasis [Not Recovered/Not Resolved]
  - Diverticulitis [Not Recovered/Not Resolved]
  - Nephrolithiasis [Not Recovered/Not Resolved]
  - Renal cyst [Not Recovered/Not Resolved]
  - Abdominal pain [Not Recovered/Not Resolved]
  - Biliary dilatation [Not Recovered/Not Resolved]
  - Pancreatolithiasis [Not Recovered/Not Resolved]

NARRATIVE: CASE EVENT DATE: 20170322
